FAERS Safety Report 10284399 (Version 1)
Quarter: 2014Q3

REPORT INFORMATION
  Report Type: Spontaneous
  Country: ES (occurrence: ES)
  Receive Date: 20140708
  Receipt Date: 20140708
  Transmission Date: 20150326
  Serious: Yes (Life-Threatening, Hospitalization)
  Sender: FDA-Public Use
  Company Number: ES-WATSON-2014-14453

PATIENT
  Age: 57 Year
  Sex: Female

DRUGS (6)
  1. BIPERIDEN [Interacting]
     Active Substance: BIPERIDEN
     Indication: SUICIDE ATTEMPT
     Dosage: 40 MG, TOTAL
     Route: 048
     Dates: start: 20140331, end: 20140331
  2. RISPERIDONA ACTAVIS [Suspect]
     Active Substance: RISPERIDONE
     Indication: SUICIDE ATTEMPT
     Dosage: 60 MG, TOTAL
     Route: 048
     Dates: start: 20140331, end: 20140331
  3. ALTISBEN [Interacting]
     Active Substance: SERTRALINE HYDROCHLORIDE
     Indication: SUICIDE ATTEMPT
     Dosage: 1 G, TOTAL
     Route: 048
     Dates: start: 20140331, end: 20140331
  4. QUETIAPINA ACTAVIS [Interacting]
     Active Substance: QUETIAPINE
     Indication: SUICIDE ATTEMPT
     Dosage: 900 MG, TOTAL
     Route: 048
     Dates: start: 20140331, end: 20140331
  5. MIRTAZAPINA ACTAVIS [Interacting]
     Active Substance: MIRTAZAPINE
     Indication: SUICIDE ATTEMPT
     Dosage: 900 MG, DAILY
     Route: 048
     Dates: start: 20140331, end: 20140331
  6. DEPAKINE CHRONO [Interacting]
     Active Substance: VALPROATE SODIUM
     Indication: SUICIDE ATTEMPT
     Dosage: 2 G, TOTAL
     Route: 048
     Dates: start: 20140331, end: 20140331

REACTIONS (5)
  - Suicide attempt [None]
  - Leukopenia [Recovered/Resolved]
  - Depressed level of consciousness [Recovered/Resolved]
  - Intentional overdose [None]
  - Thrombocytopenia [Recovered/Resolved]

NARRATIVE: CASE EVENT DATE: 20140331
